FAERS Safety Report 10446507 (Version 2)
Quarter: 2014Q4

REPORT INFORMATION
  Report Type: Spontaneous
  Country: JP (occurrence: JP)
  Receive Date: 20140911
  Receipt Date: 20141003
  Transmission Date: 20150528
  Serious: Yes (Disabling)
  Sender: FDA-Public Use
  Company Number: JP-ASTRAZENECA-2014SE67727

PATIENT
  Age: 32703 Day
  Sex: Female

DRUGS (5)
  1. MEROPEN [Suspect]
     Active Substance: MEROPENEM
     Indication: URINARY TRACT INFECTION
     Route: 042
     Dates: start: 20140708, end: 20140725
  2. REMODULIN [Concomitant]
     Active Substance: TREPROSTINIL
     Indication: DISSEMINATED INTRAVASCULAR COAGULATION
     Dates: start: 20140713, end: 20140717
  3. NONTHRON [Concomitant]
     Indication: DISSEMINATED INTRAVASCULAR COAGULATION
     Dates: start: 20140714, end: 20140716
  4. CEFTRIAXONE SODIUM HYDRATE [Concomitant]
     Indication: SEPSIS
     Dates: start: 20140710, end: 20140711
  5. NOREPINEPHRINE [Concomitant]
     Active Substance: NOREPINEPHRINE\NOREPINEPHRINE BITARTRATE
     Indication: SEPTIC SHOCK
     Dates: start: 20140712, end: 20140715

REACTIONS (2)
  - Renal disorder [Recovering/Resolving]
  - Drug eruption [Recovered/Resolved]

NARRATIVE: CASE EVENT DATE: 20140728
